FAERS Safety Report 16168639 (Version 1)
Quarter: 2019Q2

REPORT INFORMATION
  Report Type: Report from Study
  Country: CA (occurrence: CA)
  Receive Date: 20190408
  Receipt Date: 20190408
  Transmission Date: 20190711
  Serious: Yes (Other)
  Sender: FDA-Public Use
  Company Number: CA-BRISTOL-MYERS SQUIBB COMPANY-BMS-2018-035295

PATIENT
  Sex: Female

DRUGS (1)
  1. ABATACEPT [Suspect]
     Active Substance: ABATACEPT
     Indication: RHEUMATOID ARTHRITIS
     Dosage: 125 MG, QWK
     Route: 058
     Dates: start: 20171016

REACTIONS (7)
  - Rash [Recovering/Resolving]
  - Ear infection [Unknown]
  - Nodule [Recovering/Resolving]
  - Tooth abscess [Unknown]
  - Product dose omission [Recovered/Resolved]
  - Fall [Unknown]
  - Eye swelling [Unknown]
